FAERS Safety Report 7014118-0 (Version None)
Quarter: 2010Q3

REPORT INFORMATION
  Report Type: 
  Country: None (occurrence: None)
  Receive Date: 20100927
  Receipt Date: 20100921
  Transmission Date: 20110219
  Serious: Yes (Life-Threatening, Hospitalization)
  Sender: FDA-Public Use
  Company Number: US-US-EMD SERONO, INC.-237168K09USA

PATIENT
  Sex: Female
  Weight: 66 kg

DRUGS (3)
  1. REBIF [Suspect]
     Indication: MULTIPLE SCLEROSIS
     Route: 058
     Dates: start: 20070627
  2. ADVIL LIQUI-GELS [Concomitant]
     Indication: PREMEDICATION
     Route: 065
  3. MULTIPLE MEDICATION [Concomitant]
     Route: 065

REACTIONS (4)
  - RENAL DISORDER [None]
  - RESPIRATORY ARREST [None]
  - SYNCOPE [None]
  - WRIST FRACTURE [None]
